FAERS Safety Report 7912151-5 (Version None)
Quarter: 2011Q4

REPORT INFORMATION
  Report Type: 
  Country: None (occurrence: None)
  Receive Date: 20111114
  Receipt Date: 20111111
  Transmission Date: 20120403
  Serious: Yes (Other)
  Sender: FDA-Public Use
  Company Number: US-PFIZER INC-2011277259

PATIENT
  Sex: Male
  Weight: 121.54 kg

DRUGS (5)
  1. PROTONIX [Concomitant]
     Indication: GASTROOESOPHAGEAL REFLUX DISEASE
     Dosage: UNK
  2. CHANTIX [Suspect]
     Indication: SMOKING CESSATION THERAPY
     Dosage: 0.5 MG, 1X/DAY
     Route: 048
     Dates: start: 20110922, end: 20110101
  3. CHANTIX [Suspect]
     Dosage: 1 MG, 2X/DAY
     Route: 048
     Dates: start: 20110101, end: 20111106
  4. CHANTIX [Suspect]
     Dosage: 1 MG, 1X/DAY
     Route: 048
     Dates: start: 20111107
  5. ALBUTEROL [Concomitant]
     Indication: ASTHMA
     Dosage: UNK
     Route: 055

REACTIONS (5)
  - RESPIRATORY DISORDER [None]
  - COUGH [None]
  - CONSTIPATION [None]
  - HAEMOPTYSIS [None]
  - ABNORMAL DREAMS [None]
